FAERS Safety Report 25652742 (Version 1)
Quarter: 2025Q3

REPORT INFORMATION
  Report Type: Spontaneous
  Country: US (occurrence: US)
  Receive Date: 20250807
  Receipt Date: 20250807
  Transmission Date: 20251020
  Serious: No
  Sender: SANOFI AVENTIS
  Company Number: US-SA-2025SA229207

PATIENT
  Age: 54 Year
  Sex: Female
  Weight: 68.64 kg

DRUGS (1)
  1. DUPIXENT [Suspect]
     Active Substance: DUPILUMAB
     Indication: Transient acantholytic dermatosis
     Dosage: 300 MG, QOW
     Route: 058
     Dates: start: 20250430, end: 20250709

REACTIONS (10)
  - Arthralgia [Unknown]
  - Muscle spasms [Unknown]
  - Abdominal pain [Unknown]
  - Sciatica [Unknown]
  - Oedema [Unknown]
  - Flushing [Unknown]
  - Hypoaesthesia [Unknown]
  - Paraesthesia [Unknown]
  - Musculoskeletal stiffness [Unknown]
  - Product use in unapproved indication [Unknown]

NARRATIVE: CASE EVENT DATE: 20250101
